FAERS Safety Report 20996702 (Version 2)
Quarter: 2022Q4

REPORT INFORMATION
  Report Type: Report from Study
  Country: BR (occurrence: BR)
  Receive Date: 20220623
  Receipt Date: 20221130
  Transmission Date: 20230113
  Serious: Yes (Hospitalization, Other)
  Sender: FDA-Public Use
  Company Number: BR-JNJFOC-20220634443

PATIENT
  Age: 61 Year
  Sex: Female

DRUGS (3)
  1. SIMPONI [Suspect]
     Active Substance: GOLIMUMAB
     Indication: Psoriatic arthropathy
     Route: 058
     Dates: start: 202106, end: 202207
  2. SIMPONI [Suspect]
     Active Substance: GOLIMUMAB
  3. INSULIN NOS [Concomitant]
     Active Substance: INSULIN NOS
     Indication: Diabetes mellitus

REACTIONS (7)
  - Angina pectoris [Unknown]
  - Myocardial injury [Unknown]
  - Diabetes mellitus [Unknown]
  - COVID-19 [Unknown]
  - Psoriatic arthropathy [Unknown]
  - Influenza [Unknown]
  - Bronchitis [Recovered/Resolved]

NARRATIVE: CASE EVENT DATE: 20211201
